FAERS Safety Report 7345668-5 (Version None)
Quarter: 2011Q1

REPORT INFORMATION
  Report Type: 
  Country: None (occurrence: None)
  Receive Date: 20110310
  Receipt Date: 20110303
  Transmission Date: 20110831
  Serious: Yes (Other)
  Sender: FDA-Public Use
  Company Number: B0701294A

PATIENT
  Age: 9 Year
  Sex: Female

DRUGS (5)
  1. UNKNOWN DRUG [Suspect]
  2. SERETIDE [Suspect]
     Dosage: 200MCG PER DAY
     Route: 055
     Dates: start: 20110214
  3. BIOFERMIN R [Suspect]
     Route: 048
  4. CLARITH [Suspect]
     Route: 048
  5. ASVERIN [Suspect]
     Route: 048

REACTIONS (1)
  - ANGINA PECTORIS [None]
